FAERS Safety Report 6092625-5 (Version None)
Quarter: 2009Q1

REPORT INFORMATION
  Report Type: 
  Country: None (occurrence: None)
  Receive Date: 20090225
  Receipt Date: 20090217
  Transmission Date: 20090719
  Serious: Yes (Hospitalization, Other)
  Sender: FDA-Public Use
  Company Number: US-BAYER-200910439BCC

PATIENT
  Age: 61 Year
  Sex: Male

DRUGS (6)
  1. ASPIRIN [Suspect]
     Indication: CORONARY ARTERY BYPASS
     Dosage: TOTAL DAILY DOSE: 325 MG  UNIT DOSE: 325 MG
     Route: 048
     Dates: start: 19900101, end: 20071201
  2. PLAVIX [Suspect]
     Indication: DRUG USE FOR UNKNOWN INDICATION
     Dates: start: 20040101, end: 20070101
  3. PLAVIX [Suspect]
     Dates: start: 20070101, end: 20071227
  4. PLAVIX [Suspect]
     Dates: start: 20080110
  5. DIABETES MEDICATION [Concomitant]
  6. ANTIHYPERTENSIVE [Concomitant]

REACTIONS (3)
  - DUODENAL ULCER [None]
  - GASTRIC ULCER [None]
  - PANCREATITIS [None]
